FAERS Safety Report 7829915-9 (Version None)
Quarter: 2011Q4

REPORT INFORMATION
  Report Type: 
  Country: None (occurrence: None)
  Receive Date: 20111021
  Receipt Date: 20111003
  Transmission Date: 20120403
  Serious: Yes (Hospitalization, Other)
  Sender: FDA-Public Use
  Company Number: US-BAYER-2011-062576

PATIENT
  Age: 28 Year
  Sex: Female
  Weight: 79.365 kg

DRUGS (7)
  1. PROVENTIL-HFA [Concomitant]
     Indication: ASTHMA
     Dosage: UNK
     Dates: start: 20091104
  2. IBUPROFEN [Concomitant]
     Dosage: 800 MG, TID
     Dates: start: 20101025
  3. YASMIN [Suspect]
     Indication: CONTRACEPTION
     Dosage: UNK
     Dates: start: 20010101, end: 20070101
  4. AZITHROMYCIN [Concomitant]
  5. DIETARY SUPPLEMENTS [Concomitant]
     Dosage: UNK
     Dates: start: 20100105
  6. DROSPIRENONE AND ETHINYL ESTRADIOL [Suspect]
     Indication: CONTRACEPTION
     Dosage: UNK
     Dates: start: 20090818, end: 20091201
  7. CLARITHROMYCIN [Concomitant]
     Dosage: UNK
     Dates: start: 20091104

REACTIONS (6)
  - EMOTIONAL DISTRESS [None]
  - CHOLECYSTITIS CHRONIC [None]
  - INJURY [None]
  - GALLBLADDER DISORDER [None]
  - CHOLELITHIASIS [None]
  - PAIN [None]
